FAERS Safety Report 15011793 (Version 1)
Quarter: 2018Q2

REPORT INFORMATION
  Report Type: Report from Study
  Country: US (occurrence: US)
  Receive Date: 20180614
  Receipt Date: 20180614
  Transmission Date: 20180711
  Serious: Yes (Life-Threatening)
  Sender: FDA-Public Use
  Company Number: US-EISAI MEDICAL RESEARCH-EC-2018-041235

PATIENT
  Age: 50 Year
  Sex: Female
  Weight: 80.1 kg

DRUGS (11)
  1. LEXAPRO [Concomitant]
     Active Substance: ESCITALOPRAM OXALATE
  2. GLUCOPHAGE [Concomitant]
     Active Substance: METFORMIN HYDROCHLORIDE
  3. ZOFRAN [Concomitant]
     Active Substance: ONDANSETRON HYDROCHLORIDE
  4. ERIBULIN [Suspect]
     Active Substance: ERIBULIN
     Indication: BREAST CANCER STAGE IV
     Route: 041
     Dates: start: 20180605, end: 20180605
  5. ALEVE [Concomitant]
     Active Substance: NAPROXEN SODIUM
  6. FLONASE [Concomitant]
     Active Substance: FLUTICASONE PROPIONATE
  7. PEMBROLIZUMAB. [Suspect]
     Active Substance: PEMBROLIZUMAB
     Indication: BREAST CANCER STAGE IV
     Route: 041
     Dates: start: 20180605, end: 20180605
  8. NEUPOGEN [Concomitant]
     Active Substance: FILGRASTIM
  9. TYLENOL [Concomitant]
     Active Substance: ACETAMINOPHEN
  10. ZYRTEC [Concomitant]
     Active Substance: CETIRIZINE HYDROCHLORIDE
  11. ATIVAN [Concomitant]
     Active Substance: LORAZEPAM

REACTIONS (1)
  - Neutropenia [Not Recovered/Not Resolved]

NARRATIVE: CASE EVENT DATE: 20180612
